FAERS Safety Report 13345225 (Version 4)
Quarter: 2018Q1

REPORT INFORMATION
  Report Type: Spontaneous
  Country: JP (occurrence: JP)
  Receive Date: 20170317
  Receipt Date: 20180123
  Transmission Date: 20180508
  Serious: Yes (Death, Hospitalization, Other)
  Sender: FDA-Public Use
  Company Number: JP-ASTELLAS-2017JP004600

PATIENT
  Age: 75 Year
  Sex: Male

DRUGS (11)
  1. CALCIUM LACTATE [Concomitant]
     Active Substance: CALCIUM LACTATE
     Route: 048
     Dates: start: 20160420, end: 20170515
  2. ROCALTROL [Concomitant]
     Active Substance: CALCITRIOL
     Indication: HYPOCALCAEMIA
     Dosage: 0.5 ?G, ONCE DAILY
     Route: 048
     Dates: start: 20160406, end: 20160703
  3. GONAX [Concomitant]
     Active Substance: DEGARELIX
     Indication: PROSTATE CANCER
     Route: 058
     Dates: start: 20160323, end: 20160323
  4. CABAZITAXEL [Suspect]
     Active Substance: CABAZITAXEL
     Indication: HORMONE-REFRACTORY PROSTATE CANCER
     Route: 042
     Dates: start: 20170125, end: 20170125
  5. GONAX [Concomitant]
     Active Substance: DEGARELIX
     Route: 058
     Dates: start: 20160420, end: 20170419
  6. XTANDI [Suspect]
     Active Substance: ENZALUTAMIDE
     Indication: HORMONE-REFRACTORY PROSTATE CANCER
     Route: 048
     Dates: start: 20170222, end: 20170308
  7. RANMARK [Concomitant]
     Active Substance: DENOSUMAB
     Indication: METASTASES TO BONE
     Route: 058
     Dates: start: 20160323, end: 20170419
  8. DOCETAXEL. [Concomitant]
     Active Substance: DOCETAXEL
     Indication: HORMONE-REFRACTORY PROSTATE CANCER
     Dosage: UNK UNK, UNKNOWN FREQ.
     Route: 065
  9. ROCALTROL [Concomitant]
     Active Substance: CALCITRIOL
     Route: 048
     Dates: start: 20160704, end: 20170515
  10. CALCIUM LACTATE [Concomitant]
     Active Substance: CALCIUM LACTATE
     Indication: HYPOCALCAEMIA
     Route: 048
     Dates: start: 20160406, end: 20160419
  11. DECADRON [Concomitant]
     Active Substance: DEXAMETHASONE
     Indication: PROSTATE CANCER
     Dosage: 0.5 MG, ONCE DAILY
     Route: 048
     Dates: start: 20160824, end: 20170321

REACTIONS (2)
  - Thrombocytopenia [Recovered/Resolved]
  - Anaemia [Recovered/Resolved]

NARRATIVE: CASE EVENT DATE: 20170308
